FAERS Safety Report 10254549 (Version 2)
Quarter: 2014Q3

REPORT INFORMATION
  Report Type: Spontaneous
  Country: IT (occurrence: IT)
  Receive Date: 20140624
  Receipt Date: 20140729
  Transmission Date: 20150326
  Serious: Yes (Hospitalization)
  Sender: FDA-Public Use
  Company Number: IT-ACCORD-024358

PATIENT
  Age: 59 Year
  Sex: Male

DRUGS (8)
  1. LEDERFOLIN PFIZER [Suspect]
     Active Substance: LEUCOVORIN CALCIUM
     Indication: RECTAL CANCER
     Dosage: 380 MG FOR METERSQUARE OF BODY SURFACE
     Route: 041
     Dates: start: 20140122, end: 20140305
  2. FLUOROURACIL AHCL [Suspect]
     Active Substance: FLUOROURACIL
     Indication: RECTAL CANCER
     Route: 041
     Dates: start: 20140122, end: 20140305
  3. IRINOTECAN ACCORD [Suspect]
     Active Substance: IRINOTECAN
     Indication: RECTAL CANCER
     Dosage: 340 MG FOR METERSQUARE OF BODY SURFACE.
     Route: 041
     Dates: start: 20140122, end: 20140305
  4. ATROPINE SULFATE MONICO [Concomitant]
     Active Substance: ATROPINE SULFATE
     Route: 041
     Dates: start: 20140122, end: 20140305
  5. DESAMETASONE FOSFATO HOSPIRA [Concomitant]
     Route: 041
     Dates: start: 20140122, end: 20140305
  6. ALOXI [Concomitant]
     Active Substance: PALONOSETRON HYDROCHLORIDE
     Route: 041
     Dates: start: 20140122, end: 20140305
  7. PANTOPRAZOLE ZENTIVA [Concomitant]
     Dosage: STRENGTH-40 MG GASTRO-RESISTANT TABLETS, 14 TAB IN BLISTER
     Route: 048
     Dates: start: 20140122, end: 20140305
  8. DELTACORTENE [Concomitant]
     Active Substance: PREDNISONE
     Dosage: STRENGTH-25 MG TABLETS, 10 TABLETS
     Route: 048
     Dates: start: 20140122, end: 20140305

REACTIONS (2)
  - Colitis [Recovered/Resolved with Sequelae]
  - Intestinal perforation [Unknown]

NARRATIVE: CASE EVENT DATE: 20140308
